FAERS Safety Report 17037959 (Version 1)
Quarter: 2019Q4

REPORT INFORMATION
  Report Type: Spontaneous
  Country: US (occurrence: US)
  Receive Date: 20191115
  Receipt Date: 20191115
  Transmission Date: 20200122
  Serious: No
  Sender: FDA-Public Use
  Company Number: US-009507513-1911USA005687

PATIENT
  Sex: Female

DRUGS (1)
  1. INTRON A [Suspect]
     Active Substance: INTERFERON ALFA-2B
     Dosage: 18 MU MDV(6 MU/ML) 0.25 MILLIGRAM, TIW
     Route: 058
     Dates: start: 20190606

REACTIONS (2)
  - Fatigue [Not Recovered/Not Resolved]
  - Influenza like illness [Unknown]

NARRATIVE: CASE EVENT DATE: 2019
